FAERS Safety Report 4935209-1 (Version None)
Quarter: 2006Q1

REPORT INFORMATION
  Report Type: 
  Country: None (occurrence: None)
  Receive Date: 20060302
  Receipt Date: 20060223
  Transmission Date: 20060701
  Serious: Yes (Other)
  Sender: FDA-Public Use
  Company Number: US200511003074

PATIENT
  Age: 49 Year
  Sex: Female
  Weight: 107.5 kg

DRUGS (28)
  1. CYMBALTA [Suspect]
     Indication: FIBROMYALGIA
     Dosage: 60 MG, DAILY (1/D)
  2. FLONASE [Concomitant]
  3. SYNTHROID [Concomitant]
  4. KLONOPIN [Concomitant]
  5. ZANAFLEX [Concomitant]
  6. ADVAIR DISKUS 100/50 [Concomitant]
  7. HYDROCODONE BITARTRATE [Concomitant]
  8. MECLIZINE [Concomitant]
  9. EVOXAC [Concomitant]
  10. SINEQUAN [Concomitant]
  11. OXYCONTIN [Concomitant]
  12. NIFEDIPINE [Concomitant]
  13. TRAZODONE HCL [Concomitant]
  14. PROTONIX [Concomitant]
  15. SPIRONOLACTONE [Concomitant]
  16. LODINE [Concomitant]
  17. VITAMIN B12 [Concomitant]
  18. FISH OIL (FISH OIL) [Concomitant]
  19. ASPIRIN [Concomitant]
  20. DEXTROAMPHETAMINE (DEXAMFETAMINE) [Concomitant]
  21. RETIN-A (TRETINOIN) [Concomitant]
  22. MAGNESIUM (MAGNESIUM) [Concomitant]
  23. MULTIVITAMIN [Concomitant]
  24. AM LACTIN (AMMONIUM LACTATE) [Concomitant]
  25. DETROL [Concomitant]
  26. SKELAXIN [Concomitant]
  27. PREVACID [Concomitant]
  28. POTASSIUM (POTASSIUM) [Concomitant]

REACTIONS (5)
  - BLOOD ALBUMIN DECREASED [None]
  - CHROMATURIA [None]
  - HEPATIC STEATOSIS [None]
  - PROTEIN TOTAL INCREASED [None]
  - RASH [None]
